FAERS Safety Report 5187790-8 (Version None)
Quarter: 2006Q4

REPORT INFORMATION
  Report Type: 
  Country: None (occurrence: None)
  Receive Date: 20061221
  Receipt Date: 20060807
  Transmission Date: 20070319
  Serious: Yes (Hospitalization)
  Sender: FDA-Public Use
  Company Number: 2006CG01340

PATIENT
  Age: 630 Month
  Sex: Male
  Weight: 46 kg

DRUGS (5)
  1. NEXIUM [Suspect]
     Indication: ABDOMINAL PAIN UPPER
     Route: 048
     Dates: start: 20060424, end: 20060505
  2. DEXAMBUTOL [Suspect]
     Indication: PULMONARY TUBERCULOSIS
     Route: 048
     Dates: start: 20060313, end: 20060516
  3. PIRILENE [Concomitant]
     Indication: PULMONARY TUBERCULOSIS
     Route: 048
     Dates: start: 20060313, end: 20060613
  4. RIFAMPICIN [Concomitant]
     Indication: PULMONARY TUBERCULOSIS
     Route: 048
     Dates: start: 20060313
  5. RIMIFON [Concomitant]
     Indication: PULMONARY TUBERCULOSIS
     Route: 048
     Dates: start: 20060313

REACTIONS (3)
  - DIARRHOEA [None]
  - PROTEINURIA [None]
  - RENAL FAILURE ACUTE [None]
